FAERS Safety Report 14028159 (Version 1)
Quarter: 2017Q3

REPORT INFORMATION
  Report Type: Spontaneous
  Country: US (occurrence: US)
  Receive Date: 20170930
  Receipt Date: 20170930
  Transmission Date: 20171128
  Serious: Yes (Disabling, Other)
  Sender: FDA-Public Use
  Company Number: None

PATIENT
  Age: 59 Year
  Sex: Female
  Weight: 63 kg

DRUGS (9)
  1. LEVOTHYROXINE 100 MCG [Suspect]
     Active Substance: LEVOTHYROXINE
     Indication: HYPOTHYROIDISM
     Dosage: ?          QUANTITY:1 TABLET(S);?
     Route: 048
  2. PROCTOSOL [Concomitant]
  3. APAP/CODEINE [Concomitant]
     Active Substance: ACETAMINOPHEN\CODEINE PHOSPHATE
  4. FLONASE [Concomitant]
     Active Substance: FLUTICASONE PROPIONATE
  5. LACTAID [Concomitant]
     Active Substance: LACTASE
  6. HYDROXYCHOLOQ [Concomitant]
  7. VITAMIN B COMPLEX [Concomitant]
     Active Substance: CYANOCOBALAMIN\DEXPANTHENOL\NIACINAMIDE\PYRIDOXINE HYDROCHLORIDE\RIBOFLAVIN 5^-PHOSPHATE SODIUM\THIAMINE HYDROCHLORIDE\VITAMIN B COMPLEX
  8. COENZYME Q-10 [Concomitant]
  9. MELATONIN [Concomitant]
     Active Substance: MELATONIN

REACTIONS (16)
  - Vision blurred [None]
  - Eczema [None]
  - Gastrointestinal disorder [None]
  - Chest pain [None]
  - Photophobia [None]
  - Pain in jaw [None]
  - Sarcoidosis [None]
  - Discomfort [None]
  - Pain of skin [None]
  - Abdominal pain upper [None]
  - Suicidal ideation [None]
  - Neck pain [None]
  - Pain in extremity [None]
  - Sleep disorder [None]
  - Pain [None]
  - Visual impairment [None]

NARRATIVE: CASE EVENT DATE: 20170922
